FAERS Safety Report 24076806 (Version 2)
Quarter: 2024Q3

REPORT INFORMATION
  Report Type: Spontaneous
  Country: PT (occurrence: None)
  Receive Date: 20240711
  Receipt Date: 20240726
  Transmission Date: 20241016
  Serious: Yes (Other)
  Sender: ASTRAZENECA
  Company Number: 2024A151801

PATIENT
  Age: 48 Year
  Sex: Female
  Weight: 78 kg

DRUGS (3)
  1. SYMBICORT [Suspect]
     Active Substance: BUDESONIDE\FORMOTEROL FUMARATE DIHYDRATE
     Indication: Asthmatic crisis
     Dosage: 2 PUMPS - 3X A DAY, EVERY EIGHT HOURS
     Route: 055
     Dates: start: 20240611, end: 20240621
  2. PULMICORT TURBUHALER [Concomitant]
     Active Substance: BUDESONIDE
     Dosage: 2 PUFFS MORNING AND NIGHT, UNKNOWN UNKNOWN
  3. IPRATROPIUM BROMIDE [Concomitant]
     Active Substance: IPRATROPIUM BROMIDE\IPRATROPIUM BROMIDE ANHYDROUS
     Dosage: UNKNOWN

REACTIONS (6)
  - Pharyngeal swelling [Recovered/Resolved]
  - Dysphonia [Recovered/Resolved]
  - Pharyngeal inflammation [Recovered/Resolved]
  - Aphonia [Recovered/Resolved]
  - Chest discomfort [Recovered/Resolved]
  - Wheezing [Recovered/Resolved]

NARRATIVE: CASE EVENT DATE: 20240611
